FAERS Safety Report 23567700 (Version 3)
Quarter: 2024Q2

REPORT INFORMATION
  Report Type: Spontaneous
  Country: JP (occurrence: JP)
  Receive Date: 20240226
  Receipt Date: 20240422
  Transmission Date: 20240716
  Serious: Yes (Other)
  Sender: FDA-Public Use
  Company Number: JP-JNJFOC-20240259100

PATIENT
  Age: 7 Decade
  Sex: Male
  Weight: 83.3 kg

DRUGS (34)
  1. OPSUMIT [Suspect]
     Active Substance: MACITENTAN
     Indication: Pulmonary arterial hypertension
     Route: 048
     Dates: start: 20220722, end: 20220804
  2. OPSUMIT [Suspect]
     Active Substance: MACITENTAN
     Route: 048
     Dates: start: 20220805
  3. UPTRAVI [Suspect]
     Active Substance: SELEXIPAG
     Indication: Pulmonary arterial hypertension
     Route: 048
     Dates: start: 20220826, end: 20220908
  4. UPTRAVI [Suspect]
     Active Substance: SELEXIPAG
     Route: 048
     Dates: start: 20220909, end: 20220929
  5. UPTRAVI [Suspect]
     Active Substance: SELEXIPAG
     Route: 048
     Dates: start: 20220930
  6. OXYGEN [Concomitant]
     Active Substance: OXYGEN
     Route: 055
     Dates: start: 20220930
  7. PERINDOPRIL [Concomitant]
     Active Substance: PERINDOPRIL
     Dosage: 2-4MG
     Route: 048
     Dates: start: 20150213
  8. PERINDOPRIL [Concomitant]
     Active Substance: PERINDOPRIL
     Dosage: 2-4MG
     Route: 048
     Dates: start: 20201217, end: 20240126
  9. BISOPROLOL [Concomitant]
     Active Substance: BISOPROLOL\BISOPROLOL FUMARATE
     Dosage: 0.625MG-5MG
     Route: 048
     Dates: start: 20150213
  10. BISOPROLOL [Concomitant]
     Active Substance: BISOPROLOL\BISOPROLOL FUMARATE
     Dosage: 0.625MG-5MG
     Route: 048
     Dates: start: 20150611
  11. BISOPROLOL [Concomitant]
     Active Substance: BISOPROLOL\BISOPROLOL FUMARATE
     Dosage: 0.625MG-5MG
     Route: 048
     Dates: start: 20201217
  12. BISOPROLOL [Concomitant]
     Active Substance: BISOPROLOL\BISOPROLOL FUMARATE
     Dosage: 0.625MG-5MG
     Route: 048
     Dates: start: 20211209
  13. AZOSEMIDE [Concomitant]
     Active Substance: AZOSEMIDE
     Dosage: 30-60MG
     Route: 048
     Dates: start: 20150611, end: 20230803
  14. AZOSEMIDE [Concomitant]
     Active Substance: AZOSEMIDE
     Dosage: DOSE UNKNOWNDECREASED
     Route: 048
     Dates: start: 20230804, end: 20230921
  15. AZOSEMIDE [Concomitant]
     Active Substance: AZOSEMIDE
     Route: 048
     Dates: start: 20230922, end: 20240125
  16. AZOSEMIDE [Concomitant]
     Active Substance: AZOSEMIDE
     Route: 048
     Dates: start: 20240126, end: 2024
  17. AZOSEMIDE [Concomitant]
     Active Substance: AZOSEMIDE
     Route: 048
     Dates: start: 20211209
  18. AZOSEMIDE [Concomitant]
     Active Substance: AZOSEMIDE
     Route: 048
     Dates: start: 20230217
  19. AZOSEMIDE [Concomitant]
     Active Substance: AZOSEMIDE
     Route: 048
     Dates: start: 20230216
  20. SPIRIVA [Concomitant]
     Active Substance: TIOTROPIUM BROMIDE MONOHYDRATE
     Route: 055
     Dates: start: 20150611, end: 20220722
  21. OLODATEROL HYDROCHLORIDE\TIOTROPIUM BROMIDE MONOHYDRATE [Concomitant]
     Active Substance: OLODATEROL HYDROCHLORIDE\TIOTROPIUM BROMIDE MONOHYDRATE
     Dosage: 2 PIECES
     Route: 065
     Dates: start: 20220722
  22. TOLVAPTAN [Concomitant]
     Active Substance: TOLVAPTAN
     Dosage: 3.75MG-7.5MG
     Route: 065
     Dates: start: 20230217, end: 20231019
  23. TOLVAPTAN [Concomitant]
     Active Substance: TOLVAPTAN
     Dosage: DOSE UNKNOWNINCREASED
     Route: 065
     Dates: start: 20231020
  24. ESAXERENONE [Concomitant]
     Active Substance: ESAXERENONE
     Dosage: 0.625MG-1.25MG
     Route: 048
     Dates: start: 20230217, end: 20230804
  25. ESAXERENONE [Concomitant]
     Active Substance: ESAXERENONE
     Route: 048
     Dates: start: 20230922, end: 20231019
  26. ESAXERENONE [Concomitant]
     Active Substance: ESAXERENONE
     Dosage: DOSE UNKNOWNINCREASED
     Route: 048
     Dates: start: 20231020
  27. ALVESCO [Concomitant]
     Active Substance: CICLESONIDE
     Route: 065
     Dates: start: 20230804
  28. MONTELUKAST [Concomitant]
     Active Substance: MONTELUKAST SODIUM
     Route: 048
     Dates: start: 20231124
  29. LANSOPRAZOLE [Concomitant]
     Active Substance: LANSOPRAZOLE
     Route: 048
  30. FEBUXOSTAT [Concomitant]
     Active Substance: FEBUXOSTAT
     Route: 048
  31. DIETARY SUPPLEMENT\PROBIOTICS [Concomitant]
     Active Substance: DIETARY SUPPLEMENT\PROBIOTICS NOS
     Route: 048
  32. XARELTO [Concomitant]
     Active Substance: RIVAROXABAN
     Dates: start: 20230414
  33. VERAPAMIL HYDROCHLORIDE [Concomitant]
     Active Substance: VERAPAMIL HYDROCHLORIDE
     Dates: start: 20230414
  34. TAMBOCOR [Concomitant]
     Active Substance: FLECAINIDE ACETATE
     Dates: start: 20230414

REACTIONS (10)
  - Atrial fibrillation [Unknown]
  - Oedema peripheral [Unknown]
  - Blood creatinine increased [Unknown]
  - Decreased appetite [Unknown]
  - Dyspnoea exertional [Unknown]
  - Pleural effusion [Unknown]
  - Malaise [Unknown]
  - Hypotension [Unknown]
  - Off label use [Unknown]
  - Inferior vena cava dilatation [Unknown]

NARRATIVE: CASE EVENT DATE: 20220722
